FAERS Safety Report 7490558-0 (Version None)
Quarter: 2011Q2

REPORT INFORMATION
  Report Type: 
  Country: None (occurrence: None)
  Receive Date: 20110512
  Receipt Date: 20110429
  Transmission Date: 20111010
  Serious: Yes (Disabling, Other)
  Sender: FDA-Public Use
  Company Number: ALA_02735_2011

PATIENT
  Sex: Female
  Weight: 82.1011 kg

DRUGS (20)
  1. AMBIEN [Concomitant]
  2. LUNESTA [Concomitant]
  3. VITAMIN D [Concomitant]
  4. REGLAN [Suspect]
     Indication: GASTROOESOPHAGEAL REFLUX DISEASE
     Dosage: SEE IMAGE
     Route: 048
     Dates: start: 20060821, end: 20071201
  5. REGLAN [Suspect]
     Indication: GASTROOESOPHAGEAL REFLUX DISEASE
     Dosage: SEE IMAGE
     Route: 048
     Dates: start: 20050919, end: 20050927
  6. REGLAN [Suspect]
     Indication: GASTROOESOPHAGEAL REFLUX DISEASE
     Dosage: SEE IMAGE
     Route: 048
     Dates: start: 20081108, end: 20081218
  7. REGLAN [Suspect]
     Indication: GASTROOESOPHAGEAL REFLUX DISEASE
     Dosage: SEE IMAGE
     Route: 048
     Dates: start: 20081111, end: 20081221
  8. REGLAN [Suspect]
     Indication: GASTROOESOPHAGEAL REFLUX DISEASE
     Dosage: SEE IMAGE
     Route: 048
     Dates: start: 20040206, end: 20040308
  9. REGLAN [Suspect]
     Indication: GASTROOESOPHAGEAL REFLUX DISEASE
     Dosage: SEE IMAGE
     Route: 048
     Dates: start: 20070912, end: 20070912
  10. CELEXA [Concomitant]
  11. DIPHENHYDRAMINE HCL [Concomitant]
  12. LIPITOR [Concomitant]
  13. CIMETIDINE [Concomitant]
  14. PROMETHAZINE [Concomitant]
  15. ESCITALOPRAM [Concomitant]
  16. BETA BLOCKER [Concomitant]
  17. ZOLOFT [Concomitant]
  18. PROCHLORPERAZINE TAB [Concomitant]
  19. ANGIOTENSIN RECEPTOR BLOCKER [Concomitant]
  20. LANTUS [Concomitant]

REACTIONS (4)
  - EXTRAPYRAMIDAL DISORDER [None]
  - INJURY [None]
  - CHOREA [None]
  - ORAL DYSAESTHESIA [None]
